FAERS Safety Report 13728656 (Version 1)
Quarter: 2017Q3

REPORT INFORMATION
  Report Type: Spontaneous
  Country: US (occurrence: US)
  Receive Date: 20170707
  Receipt Date: 20170707
  Transmission Date: 20171127
  Serious: No
  Sender: FDA-Public Use
  Company Number: US-JNJFOC-20161004992

PATIENT
  Sex: Male

DRUGS (8)
  1. RISPERDAL [Suspect]
     Active Substance: RISPERIDONE
     Indication: AUTISM SPECTRUM DISORDER
     Route: 048
     Dates: start: 1996, end: 2012
  2. RISPERDAL [Suspect]
     Active Substance: RISPERIDONE
     Indication: ABNORMAL BEHAVIOUR
     Route: 048
     Dates: start: 1998, end: 2004
  3. RISPERDAL [Suspect]
     Active Substance: RISPERIDONE
     Indication: AUTISM SPECTRUM DISORDER
     Route: 048
     Dates: start: 1998, end: 2004
  4. INVEGA [Suspect]
     Active Substance: PALIPERIDONE
     Indication: ABNORMAL BEHAVIOUR
     Dosage: 6MG-9MG
     Route: 048
     Dates: start: 2007, end: 2007
  5. INVEGA [Suspect]
     Active Substance: PALIPERIDONE
     Indication: AUTISM SPECTRUM DISORDER
     Dosage: 6MG-9MG
     Route: 048
     Dates: start: 2007, end: 2007
  6. RISPERDAL [Suspect]
     Active Substance: RISPERIDONE
     Indication: ABNORMAL BEHAVIOUR
     Route: 048
     Dates: start: 2004, end: 2007
  7. RISPERDAL [Suspect]
     Active Substance: RISPERIDONE
     Indication: ABNORMAL BEHAVIOUR
     Route: 048
     Dates: start: 1996, end: 2012
  8. RISPERDAL [Suspect]
     Active Substance: RISPERIDONE
     Indication: AUTISM SPECTRUM DISORDER
     Route: 048
     Dates: start: 2004, end: 2007

REACTIONS (2)
  - Gynaecomastia [Not Recovered/Not Resolved]
  - Abnormal weight gain [Unknown]

NARRATIVE: CASE EVENT DATE: 2001
